FAERS Safety Report 8479798-1 (Version None)
Quarter: 2012Q2

REPORT INFORMATION
  Report Type: 
  Country: None (occurrence: None)
  Receive Date: 20120615
  Receipt Date: 20120604
  Transmission Date: 20120825
  Serious: Yes (Hospitalization)
  Sender: FDA-Public Use
  Company Number: ACO_30608_2012

PATIENT
  Age: 69 Year
  Sex: Female
  Weight: 65.8 kg

DRUGS (18)
  1. MULTIVITAMIN /00831701/ (VITAMINS NOS) [Concomitant]
  2. EGCG (EGCG) [Concomitant]
  3. ALBUTEROL [Concomitant]
  4. MUCINEX [Concomitant]
  5. ALENDRONATE SODIUM [Concomitant]
  6. METAMUCIL /00029101/ (PLANTAGO OVATA) CAPSULE [Concomitant]
  7. COMBIVENT (IPRATROPIUM BROMIDE, SALBUTAMOL SULFATE) INHALER [Concomitant]
  8. WARFARIN SODIUM [Concomitant]
  9. AMPYRA [Suspect]
     Indication: BALANCE DISORDER
     Dosage: 10 MG, ORAL
     Route: 048
  10. AMPYRA [Suspect]
     Indication: DYSSTASIA
     Dosage: 10 MG, ORAL
     Route: 048
  11. AMPYRA [Suspect]
     Indication: COORDINATION ABNORMAL
     Dosage: 10 MG, ORAL
     Route: 048
  12. AMPYRA [Suspect]
     Indication: MULTIPLE SCLEROSIS
     Dosage: 10 MG, ORAL
     Route: 048
  13. BILBERRY /01397601/ (VACCINIUM MYRTILLUS) [Concomitant]
  14. OTASSIUM CITRATE (POTASSIUM CITRATE) [Concomitant]
  15. NASONEX [Concomitant]
  16. COQ10 /00517201/ (UBIDECARENONE) [Concomitant]
  17. CALCIUM MAGNESIUM (CALCIUM, MAGNESIUM) [Concomitant]
  18. NEOSPORIN/00038301/ (BACITRACIN, NEOMYCIN SULFATE, POLYMYXIN B SULFATE [Concomitant]

REACTIONS (4)
  - PRODUCT QUALITY ISSUE [None]
  - BALANCE DISORDER [None]
  - DYSSTASIA [None]
  - DEHYDRATION [None]
